FAERS Safety Report 22265167 (Version 1)
Quarter: 2023Q2

REPORT INFORMATION
  Report Type: Spontaneous
  Country: None (occurrence: DE)
  Receive Date: 20230428
  Receipt Date: 20230428
  Transmission Date: 20230722
  Serious: Yes (Other)
  Sender: FDA-Public Use
  Company Number: DE-Ascend Therapeutics US, LLC-2140902

PATIENT
  Age: 46 Year
  Sex: Female
  Weight: 66 kg

DRUGS (7)
  1. ESTROGEL [Suspect]
     Active Substance: ESTRADIOL
     Indication: Menopausal symptoms
     Route: 062
  2. ESTRADIOL HEMIHYDRATE [Suspect]
     Active Substance: ESTRADIOL HEMIHYDRATE
     Route: 062
  3. ESTRADIOL HEMIHYDRATE [Suspect]
     Active Substance: ESTRADIOL HEMIHYDRATE
     Route: 062
  4. PROGESTERONE [Suspect]
     Active Substance: PROGESTERONE
     Route: 048
  5. PROGESTERONE [Suspect]
     Active Substance: PROGESTERONE
     Route: 067
     Dates: start: 2023
  6. ESTRIOL [Suspect]
     Active Substance: ESTRIOL
     Route: 065
  7. ESTRIOL [Suspect]
     Active Substance: ESTRIOL
     Route: 065

REACTIONS (11)
  - Syncope [Recovered/Resolved]
  - Circulatory collapse [Recovered/Resolved]
  - Vulvovaginal inflammation [Unknown]
  - Feeling abnormal [Recovered/Resolved]
  - Vulvovaginal pruritus [Unknown]
  - Condition aggravated [Unknown]
  - Dizziness [Recovered/Resolved]
  - Somnolence [Recovered/Resolved]
  - Product use issue [None]
  - Prescribed underdose [None]
  - Therapeutic response decreased [None]
